FAERS Safety Report 22176308 (Version 6)
Quarter: 2023Q2

REPORT INFORMATION
  Report Type: Report from Study
  Country: CN (occurrence: None)
  Receive Date: 20230405
  Receipt Date: 20230504
  Transmission Date: 20230721
  Serious: Yes (Hospitalization)
  Sender: FDA-Public Use
  Company Number: CN-ROCHE-3321894

PATIENT
  Age: 65 Year
  Sex: Male
  Weight: 67 kg

DRUGS (9)
  1. ATEZOLIZUMAB [Suspect]
     Active Substance: ATEZOLIZUMAB
     Indication: Small cell lung cancer extensive stage
     Dosage: SUBSEQUENT DOSES: 11/JAN/2023, 16/MAR/2023
     Route: 041
     Dates: start: 20221207
  2. CARBOPLATIN [Suspect]
     Active Substance: CARBOPLATIN
     Indication: Small cell lung cancer extensive stage
     Dosage: AREA UNDER CURVE 5 MG/ML/MINUTE (DOSE ADMINISTERED 530 MG)?ON 08/FEB/2023, MOST RECENT DOSE OF CARBO
     Route: 042
     Dates: start: 20221207
  3. VIBOSTOLIMAB [Suspect]
     Active Substance: VIBOSTOLIMAB
     Indication: Small cell lung cancer extensive stage
     Route: 065
     Dates: start: 20221207
  4. PEMBROLIZUMAB [Suspect]
     Active Substance: PEMBROLIZUMAB
     Indication: Small cell lung cancer extensive stage
     Route: 065
     Dates: start: 20221207
  5. ETOPOSIDE [Suspect]
     Active Substance: ETOPOSIDE
     Indication: Small cell lung cancer extensive stage
     Dosage: SUBSEQUENT DOSE: 16/MAR/2023
     Route: 042
     Dates: start: 20221207, end: 20230210
  6. ETOPOSIDE [Suspect]
     Active Substance: ETOPOSIDE
     Route: 042
     Dates: start: 20230316, end: 20230318
  7. INSULIN NOS [Concomitant]
     Active Substance: INSULIN NOS
     Route: 058
     Dates: start: 200701
  8. GRANULOCYTE COLONY-STIMULATING FACTOR NOS [Concomitant]
     Active Substance: GRANULOCYTE COLONY-STIMULATING FACTOR NOS
  9. ALDESLEUKIN [Concomitant]
     Active Substance: ALDESLEUKIN
     Dates: start: 20230130

REACTIONS (1)
  - Myelosuppression [Recovered/Resolved]

NARRATIVE: CASE EVENT DATE: 20230227
